FAERS Safety Report 11803657 (Version 1)
Quarter: 2015Q4

REPORT INFORMATION
  Report Type: Spontaneous
  Country: GB (occurrence: GB)
  Receive Date: 20151204
  Receipt Date: 20151204
  Transmission Date: 20160305
  Serious: Yes (Other)
  Sender: FDA-Public Use
  Company Number: PHFR2015GB009282

PATIENT

DRUGS (1)
  1. PAZOPANIB [Suspect]
     Active Substance: PAZOPANIB
     Indication: PRODUCT USED FOR UNKNOWN INDICATION
     Route: 065

REACTIONS (6)
  - Hepatic steatosis [Unknown]
  - Arthralgia [Unknown]
  - Osteolysis [Unknown]
  - Metastases to soft tissue [Unknown]
  - Metastases to kidney [Unknown]
  - Swelling [Unknown]

NARRATIVE: CASE EVENT DATE: 201402
